FAERS Safety Report 14355226 (Version 1)
Quarter: 2018Q1

REPORT INFORMATION
  Report Type: Spontaneous
  Country: US (occurrence: US)
  Receive Date: 20180104
  Receipt Date: 20180104
  Transmission Date: 20180509
  Serious: Yes (Hospitalization)
  Sender: FDA-Public Use
  Company Number: None

PATIENT
  Age: 83 Year
  Sex: Male

DRUGS (17)
  1. PLAVIX [Concomitant]
     Active Substance: CLOPIDOGREL BISULFATE
  2. METOPROLOL TARTRATE. [Concomitant]
     Active Substance: METOPROLOL TARTRATE
  3. ELIQUIS [Concomitant]
     Active Substance: APIXABAN
  4. TACROLIMUS. [Suspect]
     Active Substance: TACROLIMUS
     Indication: LIVER TRANSPLANT
     Dosage: ?          OTHER FREQUENCY:QOD;?
     Route: 048
     Dates: start: 20060126
  5. PEPCID [Concomitant]
     Active Substance: FAMOTIDINE
  6. DOXYCYCL [Concomitant]
  7. TRIAMCINOLON [Concomitant]
  8. ASPIRIN. [Concomitant]
     Active Substance: ASPIRIN
  9. FLUOROURACIL. [Concomitant]
     Active Substance: FLUOROURACIL
  10. AMLODIPINE [Concomitant]
     Active Substance: AMLODIPINE BESYLATE
  11. GLIPIZIDE. [Concomitant]
     Active Substance: GLIPIZIDE
  12. CEFUROXIME. [Concomitant]
     Active Substance: CEFUROXIME
  13. ATORVASTATIN [Concomitant]
     Active Substance: ATORVASTATIN
  14. VELTASSA [Concomitant]
     Active Substance: PATIROMER
  15. LIPITOR [Concomitant]
     Active Substance: ATORVASTATIN CALCIUM
  16. PREDNISONE. [Concomitant]
     Active Substance: PREDNISONE
  17. SOTALOL. [Concomitant]
     Active Substance: SOTALOL

REACTIONS (2)
  - Heart rate increased [None]
  - Influenza like illness [None]

NARRATIVE: CASE EVENT DATE: 20171228
